FAERS Safety Report 9849999 (Version 1)
Quarter: 2013Q4

REPORT INFORMATION
  Report Type: Spontaneous
  Country: US (occurrence: None)
  Receive Date: 20131224
  Receipt Date: 20131224
  Transmission Date: 20140711
  Serious: Yes (Other)
  Sender: FDA-Public Use
  Company Number: 20130323

PATIENT
  Age: 44 Year
  Sex: Female

DRUGS (1)
  1. VENOFER [Suspect]
     Indication: IRON DEFICIENCY ANAEMIA
     Dosage: 400 MG OVER 2 1/2 HRS IN NSS INTRAVENOUS
     Dates: start: 20130618, end: 20130618

REACTIONS (1)
  - Presyncope [None]
